FAERS Safety Report 4407072-9 (Version None)
Quarter: 2004Q3

REPORT INFORMATION
  Report Type: 
  Country: None (occurrence: None)
  Receive Date: 20040723
  Receipt Date: 20040723
  Transmission Date: 20050211
  Serious: Yes (Hospitalization)
  Sender: FDA-Public Use
  Company Number: None

PATIENT
  Age: 49 Year
  Sex: Female
  Weight: 85 kg

DRUGS (3)
  1. GEMCITABINE DAYS 1 AND 8 OF 21 DAY CYCLE [Suspect]
     Indication: BREAST CANCER
     Dosage: 1950 MG IV
     Route: 042
     Dates: start: 20040505, end: 20040714
  2. CAPECITABINE DAYS 1-14 OF 21 DAYS CYCLE [Suspect]
     Indication: BREAST CANCER
     Dosage: ? (SEE IMAGE) MG PO DAILY
     Route: 048
     Dates: start: 20040505, end: 20040714
  3. COMPAZINE [Concomitant]

REACTIONS (6)
  - CHEST PAIN [None]
  - POST PROCEDURAL NAUSEA [None]
  - POST PROCEDURAL VOMITING [None]
  - PYELONEPHRITIS [None]
  - RESPIRATORY RATE INCREASED [None]
  - TACHYCARDIA [None]
